FAERS Safety Report 4524141-3 (Version None)
Quarter: 2004Q4

REPORT INFORMATION
  Report Type: 
  Country: None (occurrence: None)
  Receive Date: 20041119
  Receipt Date: 20041022
  Transmission Date: 20050328
  Serious: No
  Sender: FDA-Public Use
  Company Number: 209920

PATIENT
  Age: 74 Year
  Sex: Female

DRUGS (1)
  1. RAPTIVA [Suspect]
     Indication: PSORIASIS
     Dosage: 1.2 ML, SUBCUTANEOUS
     Route: 058
     Dates: start: 20041019

REACTIONS (4)
  - CHILLS [None]
  - DIZZINESS [None]
  - FLUSHING [None]
  - NAUSEA [None]
